FAERS Safety Report 4599457-5 (Version None)
Quarter: 2005Q1

REPORT INFORMATION
  Report Type: 
  Country: None (occurrence: None)
  Receive Date: 20050307
  Receipt Date: 20050224
  Transmission Date: 20050727
  Serious: Yes (Other)
  Sender: FDA-Public Use
  Company Number: PHBS2005AT02979

PATIENT

DRUGS (1)
  1. LAMISIL [Suspect]
     Route: 048

REACTIONS (3)
  - SWOLLEN TONGUE [None]
  - TONGUE BLISTERING [None]
  - TONGUE EXFOLIATION [None]
